FAERS Safety Report 6210771-X (Version None)
Quarter: 2009Q2

REPORT INFORMATION
  Report Type: 
  Country: None (occurrence: None)
  Receive Date: 20090601
  Receipt Date: 20090519
  Transmission Date: 20091009
  Serious: Yes (Hospitalization)
  Sender: FDA-Public Use
  Company Number: US-MYLANLABS-2009S1008853

PATIENT
  Sex: Female
  Weight: 58.97 kg

DRUGS (7)
  1. GLIPIZIDE [Suspect]
     Indication: DIABETES MELLITUS
     Route: 048
     Dates: end: 20090511
  2. NOVOLOG [Suspect]
  3. PLAVIX [Concomitant]
  4. CARVEDILOL [Concomitant]
  5. CRESTOR [Concomitant]
  6. ASPIRIN [Concomitant]
  7. BENICAR [Concomitant]
     Indication: BLOOD PRESSURE INCREASED

REACTIONS (4)
  - BLOOD GLUCOSE INCREASED [None]
  - DRUG INEFFECTIVE [None]
  - HYPOAESTHESIA [None]
  - PARAESTHESIA [None]
